FAERS Safety Report 9304039 (Version 1)
Quarter: 2013Q2

REPORT INFORMATION
  Report Type: Spontaneous
  Country: IT (occurrence: IT)
  Receive Date: 20130522
  Receipt Date: 20130522
  Transmission Date: 20140414
  Serious: Yes (Other)
  Sender: FDA-Public Use
  Company Number: IT-TEVA-406049ISR

PATIENT
  Age: 23 Year
  Sex: Female
  Weight: 48 kg

DRUGS (13)
  1. FLUCONAZOLE [Suspect]
     Dates: start: 20110516, end: 20110516
  2. IBUPROFEN [Suspect]
     Dates: start: 20110516, end: 20110516
  3. CEFIXORAL [Suspect]
     Route: 048
     Dates: start: 20110516, end: 20110516
  4. VERMOX [Suspect]
     Route: 048
     Dates: start: 20110516, end: 20110516
  5. VOLTAREN [Suspect]
     Route: 048
     Dates: start: 20110516, end: 20110516
  6. BENTELAN [Suspect]
     Dosage: EFFERVESCENT TABLETS
     Route: 048
     Dates: start: 20110516, end: 20110516
  7. TACHIPIRINA [Suspect]
     Route: 048
     Dates: start: 20110516, end: 20110516
  8. MUSCORIL [Suspect]
     Route: 048
     Dates: start: 20110516, end: 20110516
  9. ZIRTEC [Suspect]
     Route: 048
     Dates: start: 20110516, end: 20110516
  10. MOMENDOL [Suspect]
     Route: 048
     Dates: start: 20110516, end: 20110516
  11. FERLIXIT [Suspect]
     Route: 048
     Dates: start: 20110516, end: 20110516
  12. LEXOTAN [Suspect]
     Dates: start: 20110516, end: 20110516
  13. NICOTINE [Suspect]
     Dates: start: 20110516, end: 20110516

REACTIONS (2)
  - Self injurious behaviour [Unknown]
  - Drug abuse [Unknown]
